FAERS Safety Report 12364500 (Version 1)
Quarter: 2016Q2

REPORT INFORMATION
  Report Type: Spontaneous
  Country: US (occurrence: None)
  Receive Date: 20160512
  Receipt Date: 20160512
  Transmission Date: 20160815
  Serious: No
  Sender: FDA-Public Use
  Company Number: None

PATIENT
  Age: 58 Year
  Sex: Female
  Weight: 108.86 kg

DRUGS (15)
  1. TYLENOL W CODEIN [Concomitant]
  2. COENZYME Q10 [Concomitant]
     Active Substance: UBIDECARENONE
  3. OMEPRIZOLE [Concomitant]
  4. ALEVE [Concomitant]
     Active Substance: NAPROXEN SODIUM
  5. MAGNESIUM [Concomitant]
     Active Substance: MAGNESIUM
  6. CALCIUM [Concomitant]
     Active Substance: CALCIUM
  7. ESTROGEN RING [Concomitant]
  8. PROGESTERIN [Concomitant]
  9. DAILY V [Concomitant]
  10. KRILL OIL [Concomitant]
     Active Substance: DIETARY SUPPLEMENT
  11. ZALEPLON. [Concomitant]
     Active Substance: ZALEPLON
  12. TESTOSTERONE. [Concomitant]
     Active Substance: TESTOSTERONE
  13. BUTRANS [Concomitant]
     Active Substance: BUPRENORPHINE
  14. ESTRING [Suspect]
     Active Substance: ESTRADIOL
  15. COMPOUNDED ESTROGEN [Concomitant]

REACTIONS (3)
  - Product measured potency issue [None]
  - Drug effect decreased [None]
  - Drug ineffective [None]
